FAERS Safety Report 9348918 (Version 1)
Quarter: 2013Q2

REPORT INFORMATION
  Report Type: Spontaneous
  Country: FR (occurrence: FR)
  Receive Date: 20130614
  Receipt Date: 20130614
  Transmission Date: 20140414
  Serious: Yes (Death, Other)
  Sender: FDA-Public Use
  Company Number: FR-TEVA-412059ISR

PATIENT
  Age: 70 Year
  Sex: Male

DRUGS (20)
  1. FUROSEMIDE TEVA 40 MG [Suspect]
     Dates: start: 20130503
  2. PRAVASTATINE [Concomitant]
  3. PRAVASTATINE [Concomitant]
     Dosage: DELIVERED 30-APR-2013
  4. PRAVASTATINE [Concomitant]
     Dosage: DELIVERED 30-APR-2013
  5. PRAVASTATINE [Concomitant]
     Dosage: DELIVERED 30-APR-2013
  6. PRAVASTATINE [Concomitant]
     Dosage: REPAGLINIDE 2 MG DELIVERED 30-APR-2013
  7. PRAVASTATINE [Concomitant]
     Dosage: DELIVERED 24-MAY-2013
  8. PRAVASTATINE [Concomitant]
     Dosage: DELIVERED 24-MAY-2013
  9. PRAVASTATINE [Concomitant]
     Dosage: DELIVERED 24-MAY-2013
  10. PARACETAMOL [Concomitant]
  11. KALEORID [Concomitant]
  12. PERINDOPRIL [Concomitant]
  13. LOXEN [Concomitant]
  14. ESOMEPRAZOLE [Concomitant]
  15. LANTUS [Concomitant]
  16. REPAGLINIDE [Concomitant]
  17. PREVISCAN [Concomitant]
  18. METFORMIN [Concomitant]
  19. RILMENIDINE [Concomitant]
  20. SPIRONOLACTONE [Concomitant]

REACTIONS (3)
  - Death [Fatal]
  - Coma [Unknown]
  - Ammonia increased [Unknown]
